FAERS Safety Report 14159666 (Version 4)
Quarter: 2018Q3

REPORT INFORMATION
  Report Type: Report from Study
  Country: US (occurrence: US)
  Receive Date: 20171103
  Receipt Date: 20180910
  Transmission Date: 20181010
  Serious: Yes (Other)
  Sender: FDA-Public Use
  Company Number: US-ACTELION-A-US2015-116762

PATIENT
  Age: 59 Year
  Sex: Female
  Weight: 54.42 kg

DRUGS (3)
  1. VELETRI [Suspect]
     Active Substance: EPOPROSTENOL
     Indication: PULMONARY ARTERIAL HYPERTENSION
     Dosage: 43 NG/KG, PER MIN
     Route: 042
     Dates: start: 20131016
  2. VELETRI [Suspect]
     Active Substance: EPOPROSTENOL
     Dosage: UNK
     Route: 042
  3. VELETRI [Suspect]
     Active Substance: EPOPROSTENOL
     Dosage: 71 NG/KG, PER MIN
     Route: 042

REACTIONS (42)
  - Weight decreased [Unknown]
  - Burning sensation [Unknown]
  - Pain in jaw [Unknown]
  - Neck pain [Unknown]
  - Myalgia [Unknown]
  - Abdominal pain [Unknown]
  - Eye pain [Unknown]
  - First bite syndrome [Unknown]
  - Erythema [Recovered/Resolved]
  - Catheter site scab [Unknown]
  - Night sweats [Unknown]
  - Pain in extremity [Unknown]
  - Nausea [Unknown]
  - Back pain [Unknown]
  - Urticaria [Recovered/Resolved]
  - Dry skin [Unknown]
  - Wheezing [Unknown]
  - Dyspnoea at rest [Not Recovered/Not Resolved]
  - Dyspnoea exertional [Not Recovered/Not Resolved]
  - Diarrhoea [Unknown]
  - Burning sensation mucosal [Unknown]
  - Cough [Unknown]
  - Sneezing [Unknown]
  - Nasopharyngitis [Unknown]
  - Rhinalgia [Unknown]
  - Cataract [Unknown]
  - Pruritus generalised [Unknown]
  - Blood glucose fluctuation [Unknown]
  - Stomatitis [Unknown]
  - Catheter site pruritus [Recovered/Resolved]
  - Cataract operation [Unknown]
  - Dyspnoea [Not Recovered/Not Resolved]
  - Coccydynia [Unknown]
  - Pain [Unknown]
  - Sinusitis [Unknown]
  - Musculoskeletal pain [Unknown]
  - Eye irritation [Unknown]
  - Rash [Unknown]
  - Constipation [Unknown]
  - Headache [Unknown]
  - Dysgeusia [Unknown]
  - Eczema [Unknown]
